FAERS Safety Report 9581258 (Version 3)
Quarter: 2013Q4

REPORT INFORMATION
  Report Type: Spontaneous
  Country: US (occurrence: US)
  Receive Date: 20131002
  Receipt Date: 20131018
  Transmission Date: 20140711
  Serious: No
  Sender: FDA-Public Use
  Company Number: US-PFIZER INC-2013277040

PATIENT
  Age: 34 Year
  Sex: Female
  Weight: 24.13 kg

DRUGS (1)
  1. SUNITINIB MALATE [Suspect]
     Dosage: UNK
     Route: 048
     Dates: start: 20100914, end: 20120412

REACTIONS (6)
  - Skin discolouration [Unknown]
  - Hair growth abnormal [Unknown]
  - Gingival pain [Unknown]
  - Haematuria [Unknown]
  - Amenorrhoea [Unknown]
  - Vulvovaginal dryness [Unknown]
